FAERS Safety Report 9834000 (Version 3)
Quarter: 2014Q2

REPORT INFORMATION
  Report Type: Spontaneous
  Country: BE (occurrence: BE)
  Receive Date: 20140122
  Receipt Date: 20140416
  Transmission Date: 20141212
  Serious: Yes (Hospitalization, Other)
  Sender: FDA-Public Use
  Company Number: BE-AMGEN-BELSP2014002865

PATIENT
  Age: 52 Year
  Sex: Male

DRUGS (1)
  1. NEUPOGEN [Suspect]
     Indication: PRODUCT USED FOR UNKNOWN INDICATION
     Dosage: 10 MUG/KG, UNK
     Route: 058
     Dates: start: 20140109, end: 20140113

REACTIONS (2)
  - Splenic rupture [Recovered/Resolved]
  - Impaired work ability [Unknown]
